FAERS Safety Report 19935555 (Version 3)
Quarter: 2022Q1

REPORT INFORMATION
  Report Type: Report from Study
  Country: US (occurrence: US)
  Receive Date: 20211009
  Receipt Date: 20220225
  Transmission Date: 20220424
  Serious: No
  Sender: FDA-Public Use
  Company Number: US-NOVARTISTESTPH-NVSC2021US231388

PATIENT
  Age: 35 Year

DRUGS (1)
  1. COSENTYX [Suspect]
     Active Substance: SECUKINUMAB
     Indication: Psoriasis
     Dosage: 300 MG, (QW FOR FIVE WEEKS AND THEN QMO)
     Route: 058
     Dates: start: 20210714

REACTIONS (2)
  - Arthralgia [Unknown]
  - Candida infection [Unknown]

NARRATIVE: CASE EVENT DATE: 20211001
